FAERS Safety Report 21340094 (Version 1)
Quarter: 2022Q3

REPORT INFORMATION
  Report Type: Spontaneous
  Country: CH (occurrence: CH)
  Receive Date: 20220916
  Receipt Date: 20220916
  Transmission Date: 20221027
  Serious: Yes (Other)
  Sender: FDA-Public Use
  Company Number: CH-BAXTER-2022BAX019552

PATIENT
  Age: 69 Year

DRUGS (4)
  1. CYCLOPHOSPHAMIDE [Suspect]
     Active Substance: CYCLOPHOSPHAMIDE
     Indication: Plasma cell myeloma
     Dosage: (LYMPHODEPLETING CHEMOTHERAPY)
     Route: 065
     Dates: start: 20210915
  2. FLUDARABINE [Suspect]
     Active Substance: FLUDARABINE PHOSPHATE
     Indication: Plasma cell myeloma
     Dosage: (LYMPHODEPLETING CHEMOTHERAPY)
     Route: 065
     Dates: start: 20210915
  3. GENETICALLY-MODIFIED AUTOLOGOUS T CELLS NOS [Suspect]
     Active Substance: GENETICALLY-MODIFIED AUTOLOGOUS T CELLS NOS
     Indication: Plasma cell myeloma
     Dosage: (KARMMA-3 TRIAL, RANDOMIZATION TO ARM A)
     Route: 065
     Dates: start: 20210622
  4. GENETICALLY-MODIFIED AUTOLOGOUS T CELLS NOS [Suspect]
     Active Substance: GENETICALLY-MODIFIED AUTOLOGOUS T CELLS NOS
     Dosage: INFUSION (KARMMA3-STUDIE)
     Route: 065
     Dates: start: 20210920

REACTIONS (1)
  - Plasma cell myeloma refractory [Unknown]
